FAERS Safety Report 10657622 (Version 1)
Quarter: 2014Q4

REPORT INFORMATION
  Report Type: Spontaneous
  Country: US (occurrence: US)
  Receive Date: 20141217
  Receipt Date: 20141217
  Transmission Date: 20150529
  Serious: Yes (Hospitalization)
  Sender: FDA-Public Use
  Company Number: US-ABBVIE-14K-163-1320182-00

PATIENT
  Age: 49 Year
  Sex: Female
  Weight: 59.93 kg

DRUGS (1)
  1. HUMIRA [Suspect]
     Active Substance: ADALIMUMAB
     Indication: CROHN^S DISEASE
     Route: 065
     Dates: start: 201403, end: 201409

REACTIONS (6)
  - Speech disorder [Recovered/Resolved]
  - Incoherent [Recovered/Resolved]
  - Neoplasm of thymus [Not Recovered/Not Resolved]
  - Thymus enlargement [Not Recovered/Not Resolved]
  - Cardiac failure [Not Recovered/Not Resolved]
  - Brain neoplasm [Recovering/Resolving]

NARRATIVE: CASE EVENT DATE: 20140909
